FAERS Safety Report 21215557 (Version 2)
Quarter: 2022Q3

REPORT INFORMATION
  Report Type: Spontaneous
  Country: US (occurrence: US)
  Receive Date: 20220816
  Receipt Date: 20220912
  Transmission Date: 20221026
  Serious: No
  Sender: FDA-Public Use
  Company Number: US-PFIZER INC-202201057809

PATIENT
  Age: 49 Year
  Sex: Female

DRUGS (2)
  1. XELJANZ XR [Suspect]
     Active Substance: TOFACITINIB CITRATE
     Dosage: 11 MG
     Dates: start: 202112
  2. TERBINAFINE HYDROCHLORIDE [Concomitant]
     Active Substance: TERBINAFINE HYDROCHLORIDE
     Dosage: UNK

REACTIONS (7)
  - COVID-19 [Unknown]
  - Pain in extremity [Unknown]
  - Insomnia [Unknown]
  - Therapeutic response unexpected [Unknown]
  - Fungal foot infection [Unknown]
  - Depression [Unknown]
  - Pain in extremity [Recovered/Resolved]
